FAERS Safety Report 9302010 (Version 1)
Quarter: 2013Q2

REPORT INFORMATION
  Report Type: Other
  Country: IT (occurrence: IT)
  Receive Date: 20130521
  Receipt Date: 20130521
  Transmission Date: 20140414
  Serious: Yes (Other)
  Sender: FDA-Public Use
  Company Number: IT-WATSON-2013-09344

PATIENT
  Age: 57 Year
  Sex: Male

DRUGS (2)
  1. METFORMIN HYDROCHLORIDE (UNKNOWN) [Suspect]
     Indication: DIABETES MELLITUS
     Dosage: 2000 MG, DAILY
     Route: 048
     Dates: start: 20000101, end: 20130302
  2. INSULINA /01223201/ [Suspect]
     Indication: DIABETES MELLITUS
     Dosage: 30 DF, DAILY
     Route: 058
     Dates: start: 20000101, end: 20130302

REACTIONS (1)
  - Hypoglycaemia [Recovered/Resolved]
